FAERS Safety Report 6340360-8 (Version None)
Quarter: 2009Q3

REPORT INFORMATION
  Report Type: 
  Country: None (occurrence: None)
  Receive Date: 20090904
  Receipt Date: 20090826
  Transmission Date: 20100115
  Serious: Yes (Death, Hospitalization, Other)
  Sender: FDA-Public Use
  Company Number: US-BIOGENIDEC-2008BI030209

PATIENT
  Sex: Female

DRUGS (2)
  1. AVONEX [Suspect]
     Indication: MULTIPLE SCLEROSIS
     Route: 030
     Dates: start: 19990901
  2. AVONEX [Suspect]
     Route: 030
     Dates: end: 20090129

REACTIONS (14)
  - AMNESIA [None]
  - ANAEMIA [None]
  - ASCITES [None]
  - ASTHENIA [None]
  - BLINDNESS TRANSIENT [None]
  - CIRRHOSIS ALCOHOLIC [None]
  - DEPRESSION [None]
  - DIARRHOEA [None]
  - HEPATIC FAILURE [None]
  - MULTIPLE SCLEROSIS [None]
  - NEUROGENIC BLADDER [None]
  - PNEUMONIA [None]
  - TREATMENT NONCOMPLIANCE [None]
  - URINARY TRACT INFECTION [None]
